FAERS Safety Report 8584474-0 (Version None)
Quarter: 2012Q3

REPORT INFORMATION
  Report Type: 
  Country: None (occurrence: None)
  Receive Date: 20120810
  Receipt Date: 20120807
  Transmission Date: 20120928
  Serious: No
  Sender: FDA-Public Use
  Company Number: US-PFIZER INC-2012192609

PATIENT
  Age: 75 Year
  Sex: Female
  Weight: 61.678 kg

DRUGS (3)
  1. LORATADINE AND PSEUDOEPHEDRINE SULFATE [Suspect]
     Indication: SNEEZING
  2. LISINOPRIL [Concomitant]
     Indication: BLOOD CHOLESTEROL INCREASED
     Dosage: 40 MG, DAILY
  3. LORATADINE AND PSEUDOEPHEDRINE SULFATE [Suspect]
     Indication: RHINORRHOEA
     Dosage: UNK, DAILY
     Route: 048
     Dates: start: 20120807

REACTIONS (2)
  - DRUG INEFFECTIVE [None]
  - EXPIRED DRUG ADMINISTERED [None]
